FAERS Safety Report 14453295 (Version 2)
Quarter: 2018Q1

REPORT INFORMATION
  Report Type: Spontaneous
  Country: FR (occurrence: FR)
  Receive Date: 20180129
  Receipt Date: 20180320
  Transmission Date: 20180509
  Serious: Yes (Death, Hospitalization)
  Sender: FDA-Public Use
  Company Number: FR-TAIHO ONCOLOGY INC-JPTT180064

PATIENT
  Age: 77 Year
  Sex: Female

DRUGS (1)
  1. LONSURF [Suspect]
     Active Substance: TIPIRACIL HYDROCHLORIDE\TRIFLURIDINE
     Indication: COLORECTAL CANCER METASTATIC
     Dosage: 70 MG (UNK MG/M2)
     Route: 048
     Dates: start: 201710, end: 201712

REACTIONS (2)
  - Cardiac failure [Fatal]
  - Pericardial effusion [Fatal]

NARRATIVE: CASE EVENT DATE: 201712
